FAERS Safety Report 9099264 (Version 1)
Quarter: 2013Q1

REPORT INFORMATION
  Report Type: Other
  Country: BR (occurrence: BR)
  Receive Date: 20130213
  Receipt Date: 20130213
  Transmission Date: 20140127
  Serious: Yes (Other)
  Sender: FDA-Public Use
  Company Number: BR-BRISTOL-MYERS SQUIBB COMPANY-17362989

PATIENT
  Age: 49 Year
  Sex: Male

DRUGS (6)
  1. MK-0518 [Suspect]
     Indication: HIV INFECTION
  2. LAMIVUDINE [Suspect]
     Indication: HIV INFECTION
     Dosage: OCT2009 TO MAR2011,MAR2011 TO ONG
     Dates: start: 200910
  3. TENOFOVIR DISOPROXIL FUMARATE [Suspect]
     Indication: HIV INFECTION
     Dosage: OCT2009 TO MAR2011,MAR2011 TO ONG
     Dates: start: 200910
  4. LOPINAVIR + RITONAVIR [Suspect]
     Indication: HIV INFECTION
     Dosage: OCT2009 TO MAR2011,MAR2011 TO ONG
     Dates: start: 200910
  5. ENFUVIRTIDE [Suspect]
     Indication: HIV INFECTION
  6. EFAVIRENZ [Suspect]
     Indication: HIV INFECTION
     Route: 048
     Dates: start: 201103

REACTIONS (1)
  - Porphyria non-acute [Not Recovered/Not Resolved]
